FAERS Safety Report 11055383 (Version 1)
Quarter: 2015Q2

REPORT INFORMATION
  Report Type: Spontaneous
  Country: US (occurrence: None)
  Receive Date: 20150421
  Receipt Date: 20150421
  Transmission Date: 20150821
  Serious: No
  Sender: FDA-Public Use
  Company Number: None

PATIENT
  Age: 67 Year
  Sex: Female

DRUGS (2)
  1. ENOXAPARIN 120MG/0.8ML ACTAVIS [Suspect]
     Active Substance: ENOXAPARIN
     Dosage: 0.77 ML  BID  SUBQ
     Route: 058
  2. ENOXAPARIN 120MG/0.8ML ACTAVIS [Suspect]
     Active Substance: ENOXAPARIN
     Indication: HEART VALVE OPERATION
     Dosage: 0.77 ML  BID  SUBQ
     Route: 058

REACTIONS (1)
  - Wrong technique in drug usage process [None]

NARRATIVE: CASE EVENT DATE: 20150418
